FAERS Safety Report 24061619 (Version 4)
Quarter: 2024Q3

REPORT INFORMATION
  Report Type: Report from Study
  Country: US (occurrence: US)
  Receive Date: 20240708
  Receipt Date: 20240808
  Transmission Date: 20241016
  Serious: Yes (Other)
  Sender: GLAXOSMITHKLINE
  Company Number: US-GLAXOSMITHKLINE-US2024AMR082489

PATIENT
  Sex: Female

DRUGS (1)
  1. NIRAPARIB [Suspect]
     Active Substance: NIRAPARIB
     Indication: Ovarian cancer
     Dosage: 300 MG, QD
     Route: 048
     Dates: start: 20240624

REACTIONS (13)
  - Thrombocytopenia [Recovering/Resolving]
  - Neuropathy peripheral [Not Recovered/Not Resolved]
  - Neutropenia [Not Recovered/Not Resolved]
  - Nausea [Recovering/Resolving]
  - Constipation [Recovering/Resolving]
  - Photosensitivity reaction [Not Recovered/Not Resolved]
  - Red blood cell count decreased [Recovering/Resolving]
  - White blood cell count decreased [Recovering/Resolving]
  - Abdominal discomfort [Not Recovered/Not Resolved]
  - Fatigue [Recovering/Resolving]
  - Dizziness [Recovering/Resolving]
  - Contusion [Unknown]
  - Anaemia [Not Recovered/Not Resolved]
